FAERS Safety Report 13361694 (Version 1)
Quarter: 2017Q1

REPORT INFORMATION
  Report Type: Spontaneous
  Country: SE (occurrence: SE)
  Receive Date: 20170323
  Receipt Date: 20170323
  Transmission Date: 20170429
  Serious: Yes (Hospitalization)
  Sender: FDA-Public Use
  Company Number: SE-ACCORD-049373

PATIENT
  Age: 65 Year
  Sex: Female

DRUGS (13)
  1. ACETYLCYSTEIN MYLAN [Concomitant]
  2. LEVAXIN [Concomitant]
     Active Substance: LEVOTHYROXINE SODIUM
  3. DOCETAXEL ACCORD [Suspect]
     Active Substance: DOCETAXEL
     Indication: BREAST CANCER
  4. MIRTAZAPIN ACTAVIS [Concomitant]
     Active Substance: MIRTAZAPINE
  5. ATARAX [Concomitant]
     Active Substance: HYDROXYZINE HYDROCHLORIDE
  6. PRIMPERAN [Concomitant]
     Active Substance: METOCLOPRAMIDE HYDROCHLORIDE
  7. FURIX [Concomitant]
     Active Substance: FUROSEMIDE
  8. DUROFERON [Concomitant]
     Active Substance: FERROUS SULFATE
  9. STILNOCT [Concomitant]
     Active Substance: ZOLPIDEM TARTRATE
  10. THERALEN [Concomitant]
     Active Substance: TRIMEPRAZINE
  11. MYCOSTATIN [Concomitant]
     Active Substance: NYSTATIN
  12. CIPRALEX [Concomitant]
     Active Substance: ESCITALOPRAM OXALATE
  13. ALVEDON [Concomitant]
     Active Substance: ACETAMINOPHEN

REACTIONS (1)
  - Agranulocytosis [Recovering/Resolving]

NARRATIVE: CASE EVENT DATE: 20150428
